FAERS Safety Report 8214348-6 (Version None)
Quarter: 2012Q1

REPORT INFORMATION
  Report Type: 
  Country: None (occurrence: None)
  Receive Date: 20120315
  Receipt Date: 20120315
  Transmission Date: 20120608
  Serious: No
  Sender: FDA-Public Use
  Company Number: None

PATIENT
  Age: 64 Year
  Sex: Male
  Weight: 72.5 kg

DRUGS (2)
  1. CEFTAROLINE [Suspect]
     Indication: CORONARY ARTERY BYPASS
     Dates: start: 20111026, end: 20111114
  2. CEFTAROLINE [Suspect]
     Indication: INCISION SITE INFECTION
     Dates: start: 20111026, end: 20111114

REACTIONS (1)
  - DRUG HYPERSENSITIVITY [None]
